FAERS Safety Report 4638803-0 (Version None)
Quarter: 2005Q2

REPORT INFORMATION
  Report Type: 
  Country: None (occurrence: None)
  Receive Date: 20050419
  Receipt Date: 20050413
  Transmission Date: 20051028
  Serious: Yes (Hospitalization)
  Sender: FDA-Public Use
  Company Number: 200513084US

PATIENT
  Sex: Male

DRUGS (3)
  1. LOVENOX [Suspect]
     Dosage: DOSE: UNK
  2. WARFARIN SODIUM [Suspect]
     Dosage: DOSE: UNK
  3. THALOMID [Suspect]
     Indication: MULTIPLE MYELOMA
     Dates: start: 20041210

REACTIONS (4)
  - ANAEMIA [None]
  - ATRIAL FIBRILLATION [None]
  - CHEST PAIN [None]
  - RETROPERITONEAL HAEMORRHAGE [None]
